FAERS Safety Report 11571257 (Version 2)
Quarter: 2015Q4

REPORT INFORMATION
  Report Type: Spontaneous
  Country: US (occurrence: US)
  Receive Date: 20150916
  Receipt Date: 20151027
  Transmission Date: 20160304
  Serious: No
  Sender: FDA-Public Use
  Company Number: US-ELI_LILLY_AND_COMPANY-US200909004684

PATIENT
  Sex: Female

DRUGS (2)
  1. FORTEO [Suspect]
     Active Substance: TERIPARATIDE
     Dosage: 20 UG, OTHER
  2. FORTEO [Suspect]
     Active Substance: TERIPARATIDE
     Indication: OSTEOPOROSIS
     Dosage: 20 UG, DAILY (1/D)
     Dates: start: 200909

REACTIONS (9)
  - Pain in extremity [Not Recovered/Not Resolved]
  - Haemorrhage [Unknown]
  - Bone disorder [Unknown]
  - Back pain [Unknown]
  - Muscular weakness [Unknown]
  - Contusion [Unknown]
  - Muscle spasms [Unknown]
  - Blood calcium increased [Unknown]
  - Inappropriate schedule of drug administration [Unknown]
